FAERS Safety Report 10607742 (Version 2)
Quarter: 2014Q4

REPORT INFORMATION
  Report Type: Spontaneous
  Country: JP (occurrence: JP)
  Receive Date: 20141125
  Receipt Date: 20141218
  Transmission Date: 20150529
  Serious: Yes (Death, Other)
  Sender: FDA-Public Use
  Company Number: JP-PFIZER INC-2014323547

PATIENT
  Age: 90 Year
  Sex: Male

DRUGS (4)
  1. TAKEPRON OD [Suspect]
     Active Substance: LANSOPRAZOLE
     Dosage: 30 MG, UNK
     Route: 048
     Dates: start: 201201, end: 201202
  2. TAKEPRON OD [Suspect]
     Active Substance: LANSOPRAZOLE
     Dosage: 15 MG, UNK
     Route: 048
     Dates: start: 201201, end: 201201
  3. LIPITOR [Suspect]
     Active Substance: ATORVASTATIN CALCIUM
     Dosage: UNK
     Route: 048
  4. PLAVIX [Suspect]
     Active Substance: CLOPIDOGREL BISULFATE
     Dosage: UNK
     Route: 048

REACTIONS (2)
  - Death [Fatal]
  - Drug-induced liver injury [Unknown]

NARRATIVE: CASE EVENT DATE: 2012
